FAERS Safety Report 11968781 (Version 1)
Quarter: 2016Q1

REPORT INFORMATION
  Report Type: Spontaneous
  Country: US (occurrence: None)
  Receive Date: 20160126
  Receipt Date: 20160126
  Transmission Date: 20160526
  Serious: Yes (Hospitalization)
  Sender: FDA-Public Use
  Company Number: None

PATIENT
  Age: 70 Year
  Sex: Female
  Weight: 64.86 kg

DRUGS (1)
  1. HYQVIA [Suspect]
     Active Substance: HUMAN IMMUNOGLOBULIN G\HYALURONIDASE RECOMBINANT HUMAN
     Indication: IMMUNODEFICIENCY COMMON VARIABLE
     Dosage: 20 MG, Q28DAYS, IV INFUSION
     Dates: start: 20151125, end: 20160105

REACTIONS (6)
  - Cold sweat [None]
  - Altered state of consciousness [None]
  - Dizziness [None]
  - Asthenia [None]
  - Vomiting [None]
  - Deafness unilateral [None]

NARRATIVE: CASE EVENT DATE: 20160105
